FAERS Safety Report 25860910 (Version 1)
Quarter: 2025Q3

REPORT INFORMATION
  Report Type: Spontaneous
  Country: US (occurrence: US)
  Receive Date: 20250929
  Receipt Date: 20250929
  Transmission Date: 20251021
  Serious: No
  Sender: SANOFI AVENTIS
  Company Number: US-SA-2025SA287240

PATIENT
  Age: 44 Year
  Sex: Female
  Weight: 104.78 kg

DRUGS (5)
  1. TZIELD [Suspect]
     Active Substance: TEPLIZUMAB-MZWV
     Indication: Type 1 diabetes mellitus
     Dosage: 142 UG, QD
     Route: 042
     Dates: start: 20250813, end: 202508
  2. TZIELD [Suspect]
     Active Substance: TEPLIZUMAB-MZWV
     Dosage: 273 UG, QD
     Route: 042
     Dates: start: 202508, end: 202508
  3. TZIELD [Suspect]
     Active Substance: TEPLIZUMAB-MZWV
     Dosage: 545 UG, QD
     Route: 042
     Dates: start: 202508, end: 202508
  4. TZIELD [Suspect]
     Active Substance: TEPLIZUMAB-MZWV
     Dosage: 1090 UG, QD
     Route: 042
     Dates: start: 202508, end: 202508
  5. TZIELD [Suspect]
     Active Substance: TEPLIZUMAB-MZWV
     Dosage: 2245 UG, QD
     Route: 042
     Dates: start: 202508, end: 20250826

REACTIONS (1)
  - Hypocalcaemia [Recovered/Resolved]

NARRATIVE: CASE EVENT DATE: 20250818
